FAERS Safety Report 7751680-4 (Version None)
Quarter: 2011Q3

REPORT INFORMATION
  Report Type: 
  Country: None (occurrence: None)
  Receive Date: 20110914
  Receipt Date: 20110912
  Transmission Date: 20111222
  Serious: Yes (Hospitalization, Other)
  Sender: FDA-Public Use
  Company Number: FR-BRISTOL-MYERS SQUIBB COMPANY-14939169

PATIENT
  Age: 62 Year
  Sex: Female

DRUGS (6)
  1. METFORMIN HCL [Suspect]
     Indication: DIABETES MELLITUS
     Route: 048
     Dates: end: 20090331
  2. DIAMICRON [Suspect]
     Indication: DIABETES MELLITUS
     Dosage: FORM=TABS
     Route: 048
     Dates: end: 20090331
  3. ENALAPRIL MALEATE AND HYDROCHLOROTHIAZIDE [Suspect]
     Indication: HYPERTENSION
     Dosage: FORM=TABS
     Route: 048
     Dates: end: 20090331
  4. AOTAL [Suspect]
     Indication: ALCOHOLISM
     Dosage: 2 DF(TID)=6 DF;333MG TABS.
     Route: 048
     Dates: end: 20090401
  5. NEBIVOLOL HCL [Suspect]
     Indication: HYPERTENSION
     Dosage: TABS
     Route: 048
  6. OXAZEPAM [Suspect]
     Dosage: TABS
     Route: 048
     Dates: end: 20090401

REACTIONS (6)
  - LACTIC ACIDOSIS [None]
  - DECREASED APPETITE [None]
  - HYPOGLYCAEMIA [None]
  - DEHYDRATION [None]
  - RENAL FAILURE ACUTE [None]
  - HYPERKALAEMIA [None]
